FAERS Safety Report 4847380-0 (Version None)
Quarter: 2005Q4

REPORT INFORMATION
  Report Type: 
  Country: None (occurrence: None)
  Receive Date: 20051205
  Receipt Date: 20051122
  Transmission Date: 20060501
  Serious: Yes (Hospitalization, Other)
  Sender: FDA-Public Use
  Company Number: 2005160476

PATIENT
  Age: 60 Year
  Sex: Male
  Weight: 70.7611 kg

DRUGS (3)
  1. VIAGRA [Suspect]
     Indication: ERECTILE DYSFUNCTION
     Dosage: 50 MG (50 MG AS NECESSARY) ORAL
     Route: 048
     Dates: start: 20030101, end: 20050501
  2. ANTIDEPRESSANTS [Concomitant]
  3. ZOCOR [Concomitant]

REACTIONS (4)
  - ARTERIAL OCCLUSIVE DISEASE [None]
  - BLOOD PRESSURE INCREASED [None]
  - CHOKING [None]
  - INSOMNIA [None]
